FAERS Safety Report 23453776 (Version 2)
Quarter: 2024Q1

REPORT INFORMATION
  Report Type: Spontaneous
  Country: JP (occurrence: JP)
  Receive Date: 20240129
  Receipt Date: 20240209
  Transmission Date: 20240409
  Serious: No
  Sender: FDA-Public Use
  Company Number: JP-GSKNCCC-Case-01899405_AE-79635

PATIENT

DRUGS (1)
  1. LAMICTAL [Suspect]
     Active Substance: LAMOTRIGINE
     Indication: Mental disorder
     Dosage: 150 MG, QD

REACTIONS (1)
  - Rash [Unknown]
